FAERS Safety Report 5871749-9 (Version None)
Quarter: 2008Q3

REPORT INFORMATION
  Report Type: 
  Country: None (occurrence: None)
  Receive Date: 20080902
  Receipt Date: 20060206
  Transmission Date: 20090109
  Serious: Yes (Life-Threatening, Hospitalization)
  Sender: FDA-Public Use
  Company Number: 2008AL009370

PATIENT
  Age: 58 Year
  Sex: Male

DRUGS (15)
  1. VERAPAMIL HCL [Suspect]
     Dosage: 240 MG; BID; PO
     Route: 048
  2. CANDESARTAN [Concomitant]
  3. TIOTROPIUM BROMIDE [Concomitant]
  4. ALBUTEROL SPIROS [Concomitant]
  5. ATORVASTATIN [Concomitant]
  6. ACETAMINOPHEN [Concomitant]
  7. SODIUM BICARBONATE [Concomitant]
  8. CALCIUM [Concomitant]
  9. DOXYCYCLINE [Concomitant]
  10. LANSOPRAZOLE [Concomitant]
  11. PREDNISOLONE [Concomitant]
  12. WARFARIN SODIUM [Concomitant]
  13. SALMETEROL [Concomitant]
  14. DOXAZOSIN MESYLATE [Concomitant]
  15. AMOXICILLLIN [Concomitant]

REACTIONS (4)
  - BLOOD CALCIUM DECREASED [None]
  - BRADYCARDIA [None]
  - CARDIO-RESPIRATORY ARREST [None]
  - DRUG TOXICITY [None]
